FAERS Safety Report 25132762 (Version 2)
Quarter: 2025Q2

REPORT INFORMATION
  Report Type: Spontaneous
  Country: PT (occurrence: PT)
  Receive Date: 20250328
  Receipt Date: 20250507
  Transmission Date: 20250716
  Serious: Yes (Other)
  Sender: JOHNSON AND JOHNSON
  Company Number: None

PATIENT
  Age: 37 Year
  Sex: Female
  Weight: 61 kg

DRUGS (2)
  1. CONCERTA [Suspect]
     Active Substance: METHYLPHENIDATE HYDROCHLORIDE
     Indication: Misophonia
     Dosage: 1 PER DAY AFTER BREAKFAST
     Route: 048
     Dates: start: 20250311
  2. CONCERTA [Suspect]
     Active Substance: METHYLPHENIDATE HYDROCHLORIDE
     Indication: Attention deficit hyperactivity disorder
     Route: 048
     Dates: start: 202310, end: 20250304

REACTIONS (12)
  - Diarrhoea [Not Recovered/Not Resolved]
  - Hypoaesthesia oral [Not Recovered/Not Resolved]
  - Pupillary disorder [Unknown]
  - Electric shock sensation [Unknown]
  - Dry mouth [Unknown]
  - Migraine [Unknown]
  - Pyrexia [Unknown]
  - Decreased appetite [Unknown]
  - Panic reaction [Unknown]
  - Apathy [Unknown]
  - Loss of libido [Unknown]
  - Vision blurred [Unknown]

NARRATIVE: CASE EVENT DATE: 20250311
